FAERS Safety Report 19231811 (Version 1)
Quarter: 2021Q2

REPORT INFORMATION
  Report Type: Spontaneous
  Country: GR (occurrence: GR)
  Receive Date: 20210507
  Receipt Date: 20210507
  Transmission Date: 20210717
  Serious: Yes (Other)
  Sender: FDA-Public Use
  Company Number: GR-PFIZER INC-2021421746

PATIENT
  Age: 5 Year
  Sex: Male

DRUGS (1)
  1. GENOTROPIN [Suspect]
     Active Substance: SOMATROPIN
     Dosage: 0.5 MG EACH DAY/ 6 DAYS/ 5.3 MG PEN
     Route: 058
     Dates: start: 202007

REACTIONS (2)
  - Hypertension [Not Recovered/Not Resolved]
  - Epistaxis [Not Recovered/Not Resolved]
